FAERS Safety Report 8219591-8 (Version None)
Quarter: 2012Q1

REPORT INFORMATION
  Report Type: 
  Country: None (occurrence: None)
  Receive Date: 20120319
  Receipt Date: 20120315
  Transmission Date: 20120608
  Serious: Yes (Other)
  Sender: FDA-Public Use
  Company Number: CA-PFIZER INC-2012031985

PATIENT
  Age: 20 Month
  Sex: Male
  Weight: 11.837 kg

DRUGS (3)
  1. CHILDREN'S ADVIL [Suspect]
     Indication: PYREXIA
  2. TOPIRAMATE [Suspect]
     Dosage: 75 MG, 2X/DAY
     Route: 063
  3. CHILDREN'S ADVIL [Suspect]
     Indication: TEETHING
     Dosage: 1X/DAY AT BEDTIME
     Dates: start: 20111101, end: 20120202

REACTIONS (8)
  - FEEDING DISORDER NEONATAL [None]
  - EXPOSURE DURING BREAST FEEDING [None]
  - SCREAMING [None]
  - MIDDLE INSOMNIA [None]
  - RESTLESSNESS [None]
  - DISCOMFORT [None]
  - INITIAL INSOMNIA [None]
  - REACTION TO DRUG EXCIPIENTS [None]
